FAERS Safety Report 20142148 (Version 1)
Quarter: 2021Q4

REPORT INFORMATION
  Report Type: Spontaneous
  Country: US (occurrence: None)
  Receive Date: 20211202
  Receipt Date: 20211202
  Transmission Date: 20220303
  Serious: No
  Sender: FDA-Public Use
  Company Number: None

PATIENT
  Age: 68 Year
  Sex: Female

DRUGS (2)
  1. ZOSYN [Suspect]
     Active Substance: PIPERACILLIN SODIUM\TAZOBACTAM SODIUM
  2. VANCOMYCIN HYDROCHLORIDE [Suspect]
     Active Substance: VANCOMYCIN HYDROCHLORIDE

REACTIONS (9)
  - Communication disorder [None]
  - Hypotension [None]
  - Lethargy [None]
  - Dysuria [None]
  - Urinary tract infection [None]
  - Septic shock [None]
  - Product prescribing issue [None]
  - Incorrect dose administered [None]
  - Drug monitoring procedure not performed [None]
